FAERS Safety Report 9429324 (Version 4)
Quarter: 2017Q1

REPORT INFORMATION
  Report Type: Spontaneous
  Country: US (occurrence: US)
  Receive Date: 20130730
  Receipt Date: 20170316
  Transmission Date: 20170429
  Serious: Yes (Other)
  Sender: FDA-Public Use
  Company Number: US-ASTRAZENECA-2013SE55996

PATIENT
  Age: 50 Year
  Sex: Female
  Weight: 70.3 kg

DRUGS (17)
  1. CALCIUM [Concomitant]
     Active Substance: CALCIUM
  2. METOPROLOL. [Suspect]
     Active Substance: METOPROLOL
     Indication: BLOOD PRESSURE ABNORMAL
     Route: 048
  3. METOPROLOL SUCCINATE. [Suspect]
     Active Substance: METOPROLOL SUCCINATE
     Indication: BLOOD PRESSURE ABNORMAL
     Route: 048
  4. SYNTHROID [Concomitant]
     Active Substance: LEVOTHYROXINE SODIUM
     Indication: THYROID DISORDER
     Dosage: 32.5UG UNKNOWN
     Route: 048
     Dates: start: 2012
  5. LIPITOR [Concomitant]
     Active Substance: ATORVASTATIN CALCIUM
     Indication: BLOOD CHOLESTEROL ABNORMAL
     Route: 048
  6. SYNTHROID [Concomitant]
     Active Substance: LEVOTHYROXINE SODIUM
     Indication: THYROID DISORDER
     Route: 048
     Dates: start: 2012
  7. VITAMIN B12 [Concomitant]
     Active Substance: CYANOCOBALAMIN
  8. VITAMINS NOS [Concomitant]
     Active Substance: VITAMINS
  9. ATENOLOL. [Suspect]
     Active Substance: ATENOLOL
     Route: 065
  10. LIPITOR [Concomitant]
     Active Substance: ATORVASTATIN CALCIUM
     Indication: BLOOD CHOLESTEROL ABNORMAL
  11. FISH OIL [Concomitant]
     Active Substance: FISH OIL
  12. CALCIUM [Concomitant]
     Active Substance: CALCIUM
  13. FLUTICASONE. [Concomitant]
     Active Substance: FLUTICASONE
     Route: 055
  14. VITAMIN C [Concomitant]
     Active Substance: ASCORBIC ACID
  15. ARIMIDEX [Suspect]
     Active Substance: ANASTROZOLE
     Indication: OESTROGEN RECEPTOR POSITIVE BREAST CANCER
     Route: 048
     Dates: start: 201210
  16. SYNTHROID [Concomitant]
     Active Substance: LEVOTHYROXINE SODIUM
     Indication: THYROID DISORDER
  17. VITAMIN D [Concomitant]
     Active Substance: CHOLECALCIFEROL

REACTIONS (19)
  - Biliary dilatation [Unknown]
  - Lip pain [Unknown]
  - High density lipoprotein decreased [Unknown]
  - Limb discomfort [Recovered/Resolved]
  - Gastric polyps [Unknown]
  - Non-alcoholic steatohepatitis [Unknown]
  - Vertigo [Unknown]
  - Adverse event [Unknown]
  - Abdominal mass [Unknown]
  - Effusion [Unknown]
  - Abdominal discomfort [Unknown]
  - Lip dry [Unknown]
  - Trigger finger [Unknown]
  - Lip injury [Unknown]
  - Pancreatic cyst [Unknown]
  - Weight decreased [Unknown]
  - Ulcer [Unknown]
  - Haematoma [Unknown]
  - Lip ulceration [Unknown]

NARRATIVE: CASE EVENT DATE: 2000
